FAERS Safety Report 6117169-3 (Version None)
Quarter: 2009Q1

REPORT INFORMATION
  Report Type: 
  Country: None (occurrence: None)
  Receive Date: 20090314
  Receipt Date: 20090112
  Transmission Date: 20090719
  Serious: No
  Sender: FDA-Public Use
  Company Number: US-ABBOTT-09P-163-0496707-00

PATIENT
  Sex: Female
  Weight: 99.88 kg

DRUGS (10)
  1. HUMIRA [Suspect]
     Indication: IRITIS
     Route: 058
  2. HUMIRA [Suspect]
     Indication: UVEITIS
  3. HUMIRA [Suspect]
     Indication: IRITIS
     Route: 058
     Dates: start: 20070801
  4. HUMIRA [Suspect]
     Indication: UVEITIS
  5. ADVAIR HFA [Concomitant]
     Indication: ASTHMA
     Dosage: 500/50
     Route: 055
  6. SINGULAIR [Concomitant]
     Indication: ASTHMA
     Dosage: AT HS
     Route: 048
  7. SIMVASTATIN [Concomitant]
     Indication: BLOOD CHOLESTEROL INCREASED
     Dosage: UNSURE OF STRENGTH; AT HS
     Route: 048
  8. FLUOXETINE [Concomitant]
     Indication: DEPRESSION
     Route: 048
  9. MULTI-VITAMIN [Concomitant]
     Indication: VITAMIN SUPPLEMENTATION
     Route: 048
  10. FISH OIL [Concomitant]
     Indication: BLOOD CHOLESTEROL
     Route: 048

REACTIONS (4)
  - INJECTION SITE ERYTHEMA [None]
  - INJECTION SITE PAPULE [None]
  - INJECTION SITE PRURITUS [None]
  - INJECTION SITE WARMTH [None]
